FAERS Safety Report 8237982-6 (Version None)
Quarter: 2012Q1

REPORT INFORMATION
  Report Type: 
  Country: None (occurrence: None)
  Receive Date: 20120327
  Receipt Date: 20120319
  Transmission Date: 20120608
  Serious: Yes (Hospitalization)
  Sender: FDA-Public Use
  Company Number: FR-MERCK-1203FRA00087

PATIENT
  Age: 71 Year
  Sex: Male

DRUGS (9)
  1. TELMISARTAN [Concomitant]
     Route: 065
  2. ATORVASTATIN CALCIUM [Concomitant]
     Route: 065
  3. ASPIRIN LYSINE [Concomitant]
     Route: 065
  4. RABEPRAZOLE SODIUM [Concomitant]
     Route: 065
  5. INSULIN GLARGINE [Concomitant]
     Route: 065
  6. JANUMET [Suspect]
     Indication: INSULIN-REQUIRING TYPE 2 DIABETES MELLITUS
     Route: 048
     Dates: end: 20120201
  7. AMLODIPINE BESYLATE [Concomitant]
     Route: 065
  8. HYDROCHLOROTHIAZIDE AND NEBIVOLOL HYDROCHLORIDE [Suspect]
     Route: 048
     Dates: end: 20120201
  9. DOMPERIDONE [Concomitant]
     Route: 065

REACTIONS (1)
  - RENAL FAILURE [None]
